FAERS Safety Report 5478849-6 (Version None)
Quarter: 2007Q4

REPORT INFORMATION
  Report Type: 
  Country: None (occurrence: None)
  Receive Date: 20071002
  Receipt Date: 20070919
  Transmission Date: 20080405
  Serious: Yes (Hospitalization)
  Sender: FDA-Public Use
  Company Number: 2007BM000121

PATIENT
  Age: 47 Year
  Sex: Female

DRUGS (2)
  1. PREDNISONE [Suspect]
  2. ORAPRED [Suspect]

REACTIONS (10)
  - DYSPNOEA [None]
  - HEPATIC FAILURE [None]
  - HEPATOSPLENIC CANDIDIASIS [None]
  - HEPATOSPLENOMEGALY [None]
  - HYPOTENSION [None]
  - OLIGURIA [None]
  - PYREXIA [None]
  - SYSTEMIC CANDIDA [None]
  - SYSTEMIC LUPUS ERYTHEMATOSUS [None]
  - TACHYCARDIA [None]
